FAERS Safety Report 8891093 (Version 1)
Quarter: 2012Q4

REPORT INFORMATION
  Report Type: Report from Study
  Country: GB (occurrence: GB)
  Receive Date: 20121107
  Receipt Date: 20121107
  Transmission Date: 20130627
  Serious: Yes (Hospitalization)
  Sender: FDA-Public Use
  Company Number: GB-PFIZER INC-2012269003

PATIENT
  Age: 51 Year
  Sex: Female
  Weight: 54.8 kg

DRUGS (5)
  1. EPIRUBICIN HCL [Suspect]
     Indication: BREAST CANCER
     Dosage: 160 mg, UNK
     Route: 042
     Dates: start: 20120503
  2. CYCLOPHOSPHAMIDE [Suspect]
     Indication: BREAST CANCER
     Dosage: 750 mg, UNK
     Route: 042
     Dates: start: 20120503
  3. FLUOROURACIL [Suspect]
     Indication: BREAST CANCER
     Dosage: 750 mg, UNK
     Route: 042
     Dates: start: 20120503
  4. BEVACIZUMAB [Suspect]
     Indication: BREAST CANCER
     Dosage: 875 mg, cyclic
     Dates: start: 20120117
  5. DOCETAXEL [Suspect]
     Indication: BREAST CANCER
     Dosage: 160 mg, cyclic
     Dates: start: 20120117

REACTIONS (1)
  - Anal abscess [Not Recovered/Not Resolved]
